FAERS Safety Report 6155952-9 (Version None)
Quarter: 2009Q2

REPORT INFORMATION
  Report Type: 
  Country: None (occurrence: None)
  Receive Date: 20090415
  Receipt Date: 20090409
  Transmission Date: 20091009
  Serious: Yes (Other)
  Sender: FDA-Public Use
  Company Number: IT-BRISTOL-MYERS SQUIBB COMPANY-14582134

PATIENT
  Age: 25 Year
  Sex: Female

DRUGS (3)
  1. ORENCIA [Suspect]
     Indication: RHEUMATOID ARTHRITIS
     Dosage: INFUSION 3;INTERRUPTED ON APR2009
     Route: 042
     Dates: start: 20090101
  2. METHOTREXATE [Concomitant]
  3. CORTICOSTEROID [Concomitant]
     Route: 048

REACTIONS (1)
  - IRIDOCYCLITIS [None]
